FAERS Safety Report 5032781-0 (Version None)
Quarter: 2006Q2

REPORT INFORMATION
  Report Type: 
  Country: None (occurrence: None)
  Receive Date: 20060620
  Receipt Date: 20060607
  Transmission Date: 20061013
  Serious: Yes (Hospitalization)
  Sender: FDA-Public Use
  Company Number: 2006058432

PATIENT
  Sex: Female
  Weight: 63.5036 kg

DRUGS (2)
  1. BEXTRA [Suspect]
     Indication: ARTHRITIS
  2. BEXTRA [Suspect]
     Indication: BACK PAIN

REACTIONS (13)
  - BIPOLAR I DISORDER [None]
  - CEREBRAL ATROPHY [None]
  - FALL [None]
  - HAND FRACTURE [None]
  - HIP FRACTURE [None]
  - JOINT SPRAIN [None]
  - LACUNAR INFARCTION [None]
  - MICROANGIOPATHY [None]
  - OEDEMA PERIPHERAL [None]
  - PATHOLOGICAL FRACTURE [None]
  - PELVIC FRACTURE [None]
  - TRANSIENT ISCHAEMIC ATTACK [None]
  - WRIST FRACTURE [None]
